FAERS Safety Report 9985358 (Version 1)
Quarter: 2014Q1

REPORT INFORMATION
  Report Type: Report from Study
  Country: US (occurrence: US)
  Receive Date: 20140307
  Receipt Date: 20140307
  Transmission Date: 20141002
  Serious: No
  Sender: FDA-Public Use
  Company Number: US-ABBVIE-13P-163-1184962-00

PATIENT
  Age: 41 Year
  Sex: Male

DRUGS (7)
  1. HUMIRA [Suspect]
     Indication: COLITIS ULCERATIVE
     Dates: start: 20131207, end: 20131207
  2. HUMIRA [Suspect]
     Dates: start: 20131221, end: 20131221
  3. HUMIRA [Suspect]
  4. PREDNISONE [Concomitant]
     Indication: COLITIS ULCERATIVE
     Dates: start: 20140106
  5. METHOTREXATE [Concomitant]
     Indication: COLITIS ULCERATIVE
  6. FOLIC ACID [Concomitant]
     Indication: PRODUCT USED FOR UNKNOWN INDICATION
  7. CALCIUM [Concomitant]
     Indication: PRODUCT USED FOR UNKNOWN INDICATION

REACTIONS (3)
  - Melaena [Not Recovered/Not Resolved]
  - Colitis ulcerative [Not Recovered/Not Resolved]
  - Abdominal pain upper [Not Recovered/Not Resolved]
